FAERS Safety Report 18632771 (Version 1)
Quarter: 2020Q4

REPORT INFORMATION
  Report Type: Report from Study
  Country: BR (occurrence: BR)
  Receive Date: 20201218
  Receipt Date: 20201218
  Transmission Date: 20210114
  Serious: Yes (Other)
  Sender: FDA-Public Use
  Company Number: BR-UCBSA-2020046209

PATIENT
  Age: 48 Year
  Sex: Female
  Weight: 87 kg

DRUGS (2)
  1. ROSUVASTATINA [ROSUVASTATIN] [Concomitant]
     Active Substance: ROSUVASTATIN
     Indication: BLOOD CHOLESTEROL
     Dosage: 10 MILLIGRAM
     Route: 048
     Dates: start: 2016
  2. CERTOLIZUMAB PEGOL RA [Suspect]
     Active Substance: CERTOLIZUMAB PEGOL
     Indication: RHEUMATOID ARTHRITIS
     Dosage: 200 MILLIGRAM, EV 30 DAYS
     Route: 058
     Dates: start: 20191104

REACTIONS (3)
  - Product dose omission issue [Unknown]
  - COVID-19 [Recovered/Resolved]
  - Product use issue [Unknown]

NARRATIVE: CASE EVENT DATE: 20200929
